FAERS Safety Report 18937678 (Version 1)
Quarter: 2021Q1

REPORT INFORMATION
  Report Type: Report from Study
  Country: HU (occurrence: HU)
  Receive Date: 20210225
  Receipt Date: 20210225
  Transmission Date: 20210420
  Serious: Yes (Other)
  Sender: FDA-Public Use
  Company Number: NVSC2020HU068562

PATIENT
  Age: 76 Year
  Sex: Female

DRUGS (4)
  1. KISQALI [Suspect]
     Active Substance: RIBOCICLIB
     Dosage: UNK
     Route: 065
  2. KISQALI [Suspect]
     Active Substance: RIBOCICLIB
     Dosage: 1X3 DAILY FOR 21 DAYS, AFTER ONE WEEK BREAK
     Route: 065
  3. KISQALI [Suspect]
     Active Substance: RIBOCICLIB
     Dosage: 1X3 DAILY FOR 21 DAYS, AFTER ONE WEEK BREAK
     Route: 065
  4. KISQALI [Suspect]
     Active Substance: RIBOCICLIB
     Indication: PRODUCT USED FOR UNKNOWN INDICATION
     Dosage: 1X3 DAILY FOR 21 DAYS, AFTER ONE WEEK BREAK
     Route: 065
     Dates: start: 20200208, end: 20200229

REACTIONS (7)
  - Exercise tolerance decreased [Unknown]
  - Dyspnoea [Unknown]
  - Neutropenia [Unknown]
  - Metastatic neoplasm [Unknown]
  - Metastases to bone [Unknown]
  - Pleural effusion [Not Recovered/Not Resolved]
  - Disease progression [Unknown]

NARRATIVE: CASE EVENT DATE: 20200306
